FAERS Safety Report 4778746-5 (Version None)
Quarter: 2005Q3

REPORT INFORMATION
  Report Type: 
  Country: None (occurrence: None)
  Receive Date: 20050922
  Receipt Date: 20050913
  Transmission Date: 20060218
  Serious: Yes (Hospitalization)
  Sender: FDA-Public Use
  Company Number: 200512709GDS

PATIENT
  Age: 83 Year
  Sex: Male
  Weight: 69 kg

DRUGS (4)
  1. MOXIFLOXACIN HCL [Suspect]
     Indication: PNEUMONIA
     Dosage: 400 MG, TOTAL DAILY, INTRAVENOUS
     Route: 042
     Dates: start: 20050426, end: 20050429
  2. HYPREN PLUS [Concomitant]
  3. LANITOP [Concomitant]
  4. ISOPTIN [Concomitant]

REACTIONS (2)
  - CLOSTRIDIUM COLITIS [None]
  - DIARRHOEA [None]
